FAERS Safety Report 4413618-7 (Version None)
Quarter: 2004Q2

REPORT INFORMATION
  Report Type: 
  Country: None (occurrence: None)
  Receive Date: 20040630
  Receipt Date: 20040510
  Transmission Date: 20050107
  Serious: No
  Sender: FDA-Public Use
  Company Number: 04P-163-0260169-00

PATIENT
  Age: 75 Year
  Sex: Female

DRUGS (6)
  1. HUMIRA [Suspect]
     Indication: RHEUMATOID ARTHRITIS
     Dosage: 40 MG, 1 IN 2 WK, SUBCUTANEOUS
     Route: 058
     Dates: start: 20040507
  2. PREDNISONE TAB [Concomitant]
  3. AMLODIPINE BESYLATE [Concomitant]
  4. MANDRAX [Concomitant]
  5. ASPIRIN [Concomitant]
  6. SIMVASTATIN [Concomitant]

REACTIONS (1)
  - RASH [None]
